FAERS Safety Report 25326397 (Version 4)
Quarter: 2025Q4

REPORT INFORMATION
  Report Type: Spontaneous
  Country: US (occurrence: US)
  Receive Date: 20250516
  Receipt Date: 20251009
  Transmission Date: 20260117
  Serious: Yes (Hospitalization)
  Sender: BIOGEN
  Company Number: US-BIOGEN-2025BI01311209

PATIENT
  Age: 33 Year
  Sex: Female

DRUGS (2)
  1. TYSABRI [Suspect]
     Active Substance: NATALIZUMAB
     Indication: Multiple sclerosis
     Route: 050
     Dates: start: 20220129, end: 20231017
  2. TYSABRI [Suspect]
     Active Substance: NATALIZUMAB
     Route: 050
     Dates: start: 20240128, end: 20250321

REACTIONS (5)
  - Neuropathy peripheral [Not Recovered/Not Resolved]
  - Balance disorder [Unknown]
  - Loss of control of legs [Unknown]
  - Presyncope [Unknown]
  - Palpitations [Unknown]

NARRATIVE: CASE EVENT DATE: 20250901
